FAERS Safety Report 10018303 (Version 2)
Quarter: 2014Q1

REPORT INFORMATION
  Report Type: Spontaneous
  Country: US (occurrence: US)
  Receive Date: 20140318
  Receipt Date: 20140318
  Transmission Date: 20141002
  Serious: Yes (Hospitalization)
  Sender: FDA-Public Use
  Company Number: US-BRISTOL-MYERS SQUIBB COMPANY-19935220

PATIENT
  Sex: Female

DRUGS (1)
  1. ERBITUX [Suspect]
     Indication: TONSIL CANCER
     Dosage: IVPB, 6 TO 7 WEEKS?LOD DOSE 644 MG?MAIN DO 402 MG?16DE, 23DE, 31DE13 ,8JAN14
     Route: 042

REACTIONS (1)
  - Hypersensitivity [Unknown]
